FAERS Safety Report 4319702-0 (Version None)
Quarter: 2004Q1

REPORT INFORMATION
  Report Type: 
  Country: None (occurrence: None)
  Receive Date: 20040319
  Receipt Date: 20040301
  Transmission Date: 20041129
  Serious: Yes (Other)
  Sender: FDA-Public Use
  Company Number: IE-BRISTOL-MYERS SQUIBB COMPANY-12520615

PATIENT
  Age: 73 Year
  Sex: Male

DRUGS (10)
  1. SINEMET [Suspect]
     Indication: PARKINSON'S DISEASE
     Dosage: INCREASED FROM 2 TABLETS 3 TIMES DAILY TO 2.5 TABLETS 3 TIMES DAILY ON 18-FEB-2004
     Route: 048
     Dates: start: 20040217
  2. LITHIUM [Interacting]
  3. NU-SEALS ASPIRIN [Concomitant]
  4. LIPITOR [Concomitant]
  5. ASASANTIN RETARD [Concomitant]
  6. MIRAPEX [Concomitant]
  7. RISPERIDONE [Concomitant]
     Route: 048
  8. FLURAZEPAM [Concomitant]
     Dosage: AT NIGHT
  9. NITRATE [Concomitant]
     Dosage: PATCH
  10. PRIADEL [Concomitant]

REACTIONS (2)
  - DRUG INTERACTION [None]
  - DRUG LEVEL INCREASED [None]
